FAERS Safety Report 15921085 (Version 2)
Quarter: 2019Q1

REPORT INFORMATION
  Report Type: Spontaneous
  Country: DE (occurrence: DE)
  Receive Date: 20190205
  Receipt Date: 20190212
  Transmission Date: 20190417
  Serious: Yes (Life-Threatening)
  Sender: FDA-Public Use
  Company Number: DE-OTSUKA-2019_003059

PATIENT
  Age: 37 Year
  Sex: Male
  Weight: 40 kg

DRUGS (4)
  1. ABILIFY MAINTENA [Suspect]
     Active Substance: ARIPIPRAZOLE
     Indication: SCHIZOPHRENIA
  2. ABILIFY [Suspect]
     Active Substance: ARIPIPRAZOLE
     Indication: PSYCHOTIC DISORDER
     Dosage: 9.75 MG, UNK
     Route: 065
     Dates: start: 20190129
  3. ABILIFY MAINTENA [Suspect]
     Active Substance: ARIPIPRAZOLE
     Indication: PSYCHOTIC DISORDER
     Dosage: 300 MG, UNK
     Route: 065
     Dates: start: 20190203
  4. ABILIFY [Suspect]
     Active Substance: ARIPIPRAZOLE
     Indication: SCHIZOPHRENIA
     Dosage: 7.5MG/ML
     Route: 065
     Dates: start: 20190125, end: 20190130

REACTIONS (4)
  - Product use in unapproved indication [Unknown]
  - General physical health deterioration [Unknown]
  - Prescribed underdose [Unknown]
  - Respiratory failure [Unknown]

NARRATIVE: CASE EVENT DATE: 20190125
